FAERS Safety Report 10618585 (Version 2)
Quarter: 2014Q4

REPORT INFORMATION
  Report Type: Spontaneous
  Country: GB (occurrence: GB)
  Receive Date: 20141202
  Receipt Date: 20141203
  Transmission Date: 20150529
  Serious: Yes (Hospitalization, Other)
  Sender: FDA-Public Use
  Company Number: GB-BAYER-2014-170240

PATIENT
  Age: 61 Year
  Sex: Male

DRUGS (12)
  1. METRONIDAZOLE. [Concomitant]
     Active Substance: METRONIDAZOLE
     Indication: STAPHYLOCOCCUS TEST POSITIVE
  2. CIPROFLOXACIN. [Suspect]
     Active Substance: CIPROFLOXACIN
     Indication: STAPHYLOCOCCUS TEST POSITIVE
     Dosage: UNK
  3. VANCOMYCIN [Concomitant]
     Active Substance: VANCOMYCIN
  4. AMPICILLIN [Concomitant]
     Active Substance: AMPICILLIN
  5. CIPROFLOXACIN. [Suspect]
     Active Substance: CIPROFLOXACIN
     Indication: ENTEROBACTER TEST POSITIVE
     Dosage: UNK
  6. METRONIDAZOLE. [Concomitant]
     Active Substance: METRONIDAZOLE
     Indication: ENTEROBACTER TEST POSITIVE
  7. GENTAMICIN. [Concomitant]
     Active Substance: GENTAMICIN
  8. TEICOPLANIN [Concomitant]
     Active Substance: TEICOPLANIN
  9. MEROPENEM. [Concomitant]
     Active Substance: MEROPENEM
  10. CIPROFLOXACIN. [Suspect]
     Active Substance: CIPROFLOXACIN
     Indication: SERRATIA INFECTION
  11. CLINDAMYCIN [Concomitant]
     Active Substance: CLINDAMYCIN\CLINDAMYCIN PHOSPHATE
  12. LINEZOLID. [Concomitant]
     Active Substance: LINEZOLID

REACTIONS (9)
  - Pathogen resistance [Recovered/Resolved]
  - Joint dislocation [None]
  - Hip arthroplasty [None]
  - Arthralgia [None]
  - Periprosthetic fracture [None]
  - Peripheral swelling [None]
  - Wound complication [None]
  - Pain in extremity [None]
  - Wound infection [None]
